FAERS Safety Report 25279544 (Version 2)
Quarter: 2025Q2

REPORT INFORMATION
  Report Type: Spontaneous
  Country: FR (occurrence: FR)
  Receive Date: 20250507
  Receipt Date: 20250522
  Transmission Date: 20250717
  Serious: Yes (Hospitalization, Other)
  Sender: Atnahs Healthcare
  Company Number: FR-ATNAHS-ATNAHS20250503598

PATIENT
  Age: 21 Year
  Sex: Female

DRUGS (6)
  1. DIAZEPAM [Suspect]
     Active Substance: DIAZEPAM
     Indication: Suicidal ideation
  2. DIAZEPAM [Suspect]
     Active Substance: DIAZEPAM
     Indication: Drug dependence
  3. ALCOHOL [Suspect]
     Active Substance: ALCOHOL
     Indication: Product used for unknown indication
  4. ALPRAZOLAM [Concomitant]
     Active Substance: ALPRAZOLAM
     Indication: Suicide attempt
  5. ZOLPIDEM [Concomitant]
     Active Substance: ZOLPIDEM TARTRATE
     Indication: Drug dependence
  6. KETAMINE [Concomitant]
     Active Substance: KETAMINE
     Indication: Drug abuse

REACTIONS (6)
  - Alcoholism [Unknown]
  - Memory impairment [Unknown]
  - Overdose [Unknown]
  - Drug dependence [Unknown]
  - Product administered from unauthorised provider [Unknown]
  - Intentional product misuse [Unknown]
